FAERS Safety Report 9156696 (Version 1)
Quarter: 2013Q1

REPORT INFORMATION
  Report Type: Spontaneous
  Country: US (occurrence: None)
  Receive Date: 20130207
  Receipt Date: 20130207
  Transmission Date: 20140127
  Serious: Yes (Other)
  Sender: FDA-Public Use
  Company Number: DSU-2013-01022

PATIENT
  Age: 46 Year
  Sex: Male
  Weight: 102.06 kg

DRUGS (3)
  1. BENICAR HCT [Suspect]
     Indication: HYPERTENSION
     Route: 048
     Dates: start: 2007, end: 2010
  2. FLU SHOT [Suspect]
     Indication: PRODUCT USED FOR UNKNOWN INDICATION
     Dates: start: 2009, end: 2009
  3. UNKNOWN ANTIBIOTIC (ANTIBIOTICS) [Suspect]
     Indication: APHONIA
     Dates: start: 2009, end: 2009

REACTIONS (9)
  - Aphonia [None]
  - Weight decreased [None]
  - Hyperhidrosis [None]
  - Blood potassium decreased [None]
  - Road traffic accident [None]
  - Radiculitis [None]
  - Intervertebral disc protrusion [None]
  - Blood pressure inadequately controlled [None]
  - Allergy to vaccine [None]
